FAERS Safety Report 16846557 (Version 1)
Quarter: 2019Q3

REPORT INFORMATION
  Report Type: Spontaneous
  Country: US (occurrence: US)
  Receive Date: 20190924
  Receipt Date: 20190924
  Transmission Date: 20191005
  Serious: Yes (Hospitalization)
  Sender: FDA-Public Use
  Company Number: US-AKRON, INC.-2074853

PATIENT
  Sex: Female

DRUGS (1)
  1. VANCOMYCIN HCI CAPSULES [Suspect]
     Active Substance: VANCOMYCIN HYDROCHLORIDE
     Route: 048

REACTIONS (1)
  - Abdominal discomfort [None]
